FAERS Safety Report 22973961 (Version 2)
Quarter: 2024Q3

REPORT INFORMATION
  Report Type: Report from Study
  Country: US (occurrence: US)
  Receive Date: 20230922
  Receipt Date: 20240828
  Transmission Date: 20241016
  Serious: Yes (Other)
  Sender: ABBVIE
  Company Number: US-ABBVIE-5413918

PATIENT
  Sex: Female

DRUGS (1)
  1. SKYRIZI [Suspect]
     Active Substance: RISANKIZUMAB-RZAA
     Indication: Psoriasis
     Route: 058
     Dates: start: 20191117

REACTIONS (9)
  - Cardiac operation [Unknown]
  - Pain of skin [Unknown]
  - Device breakage [Unknown]
  - Intestinal haemorrhage [Unknown]
  - Anaemia [Unknown]
  - Endodontic procedure [Unknown]
  - Blood iron decreased [Unknown]
  - Skin fissures [Unknown]
  - Full blood count decreased [Unknown]

NARRATIVE: CASE EVENT DATE: 20220101
